FAERS Safety Report 8287336-1 (Version None)
Quarter: 2012Q2

REPORT INFORMATION
  Report Type: 
  Country: None (occurrence: None)
  Receive Date: 20120416
  Receipt Date: 20120404
  Transmission Date: 20120825
  Serious: Yes (Other)
  Sender: FDA-Public Use
  Company Number: US-SANOFI-AVENTIS-2012SA023526

PATIENT
  Sex: Male

DRUGS (1)
  1. AMBIEN [Suspect]
     Route: 065

REACTIONS (2)
  - FALL [None]
  - UPPER LIMB FRACTURE [None]
